FAERS Safety Report 7077345-2 (Version None)
Quarter: 2010Q4

REPORT INFORMATION
  Report Type: 
  Country: None (occurrence: None)
  Receive Date: 20101101
  Receipt Date: 20101021
  Transmission Date: 20110411
  Serious: Yes (Hospitalization)
  Sender: FDA-Public Use
  Company Number: US-JNJFOC-20101004456

PATIENT
  Sex: Female
  Weight: 60.7 kg

DRUGS (12)
  1. REMICADE [Suspect]
     Indication: CROHN'S DISEASE
     Route: 042
  2. METHOTREXATE [Suspect]
     Indication: ILL-DEFINED DISORDER
  3. TRETINOIN [Concomitant]
  4. ANTIBIOTICS [Concomitant]
     Indication: INFLAMMATORY BOWEL DISEASE
  5. POLYMYXIN B SULFATE W/TRIMETHOPRIM SULFATE [Concomitant]
  6. PREDNISONE [Concomitant]
  7. OMEPRAZOLE [Concomitant]
  8. ORTHO TRI-CYCLEN [Concomitant]
  9. CLINDAGEL [Concomitant]
  10. FOLVITE [Concomitant]
  11. FERROUS SULFATE [Concomitant]
  12. LANSOPRAZOLE [Concomitant]

REACTIONS (1)
  - CROHN'S DISEASE [None]
